FAERS Safety Report 9089707 (Version 1)
Quarter: 2013Q1

REPORT INFORMATION
  Report Type: Spontaneous
  Country: US (occurrence: US)
  Receive Date: 20130131
  Receipt Date: 20130131
  Transmission Date: 20140127
  Serious: Yes (Other)
  Sender: FDA-Public Use
  Company Number: PHHY2013US008507

PATIENT
  Age: 71 Year
  Sex: Female

DRUGS (2)
  1. ASCRIPTIN BUFFERED CAPS UNKNOWN FORMULA [Suspect]
     Indication: INFLAMMATION
     Dosage: 9-12 DF, DAILY
     Route: 048
     Dates: start: 2003, end: 20130127
  2. BUFFERED ASPIRIN [Concomitant]
     Route: 048
     Dates: start: 20130128

REACTIONS (5)
  - Femur fracture [Unknown]
  - Hip fracture [Unknown]
  - Lymphoedema [Unknown]
  - Incorrect dose administered [Unknown]
  - Incorrect drug administration duration [Unknown]
